FAERS Safety Report 9683541 (Version 4)
Quarter: 2014Q1

REPORT INFORMATION
  Report Type: Spontaneous
  Country: JP (occurrence: JP)
  Receive Date: 20131112
  Receipt Date: 20140213
  Transmission Date: 20141002
  Serious: Yes (Other)
  Sender: FDA-Public Use
  Company Number: PHHY2013JP127272

PATIENT
  Sex: Female

DRUGS (1)
  1. APRESOLINE [Suspect]
     Indication: HYPERTENSION
     Route: 048

REACTIONS (8)
  - Proteinuria [Unknown]
  - Premature labour [Unknown]
  - Glycosylated haemoglobin increased [Unknown]
  - Blood uric acid increased [Unknown]
  - Creatinine renal clearance increased [Unknown]
  - Blood creatinine increased [Unknown]
  - Anaemia [Unknown]
  - Maternal exposure during pregnancy [Unknown]
